FAERS Safety Report 9434321 (Version 3)
Quarter: 2014Q1

REPORT INFORMATION
  Report Type: Report from Study
  Country: JP (occurrence: JP)
  Receive Date: 20130801
  Receipt Date: 20140305
  Transmission Date: 20141002
  Serious: Yes (Hospitalization)
  Sender: FDA-Public Use
  Company Number: JP-AMGEN-JPNCT2013053871

PATIENT
  Age: 82 Year
  Sex: Female

DRUGS (11)
  1. DARBEPOETIN ALFA [Suspect]
     Indication: NEPHROGENIC ANAEMIA
     Dosage: 60 MUG, QD
     Route: 058
     Dates: start: 20110408
  2. KALIMATE [Concomitant]
     Dosage: UNK
     Route: 048
  3. CALCIUM LACTATE PENTAHYDRATE [Concomitant]
     Dosage: UNK
     Route: 048
  4. BAYASPIRIN [Concomitant]
     Dosage: UNK
     Route: 048
  5. ADALAT CR [Concomitant]
     Dosage: UNK
     Route: 048
  6. DIOVAN [Concomitant]
     Dosage: UNK
     Route: 048
  7. LIPITOR [Concomitant]
     Dosage: UNK
     Route: 048
  8. ZYLORIC [Concomitant]
     Dosage: UNK
     Route: 048
  9. ATELEC [Concomitant]
     Dosage: UNK
     Route: 048
  10. LASIX [Concomitant]
     Dosage: UNK
     Route: 048
  11. FERROMIA [Concomitant]
     Dosage: UNK
     Route: 048

REACTIONS (2)
  - Bronchitis [Recovering/Resolving]
  - Oedema [Recovering/Resolving]
